FAERS Safety Report 15266483 (Version 1)
Quarter: 2018Q3

REPORT INFORMATION
  Report Type: Spontaneous
  Country: US (occurrence: US)
  Receive Date: 20180810
  Receipt Date: 20180810
  Transmission Date: 20181010
  Serious: Yes (Other)
  Sender: FDA-Public Use
  Company Number: US-PFIZER INC-2018317317

PATIENT
  Age: 63 Year
  Sex: Female
  Weight: 51.71 kg

DRUGS (1)
  1. SODIUM BICARBONATE. [Suspect]
     Active Substance: SODIUM BICARBONATE
     Dosage: UNK
     Route: 042
     Dates: start: 20170421, end: 20170421

REACTIONS (5)
  - Clostridium difficile infection [Recovered/Resolved]
  - Poor quality drug administered [Unknown]
  - Weight decreased [Unknown]
  - Product use issue [Unknown]
  - Lactose intolerance [Unknown]

NARRATIVE: CASE EVENT DATE: 2017
